FAERS Safety Report 9040758 (Version 1)
Quarter: 2013Q1

REPORT INFORMATION
  Report Type: Report from Study
  Country: US (occurrence: US)
  Receive Date: 20130129
  Receipt Date: 20130129
  Transmission Date: 20140127
  Serious: No
  Sender: FDA-Public Use
  Company Number: US-ABBOTT-12P-163-0891722-00

PATIENT
  Sex: Male
  Weight: 70.37 kg

DRUGS (4)
  1. HUMIRA 40 MG/0.8 ML PEN [Suspect]
     Indication: POLYMYALGIA RHEUMATICA
     Route: 058
     Dates: start: 20110106
  2. HUMIRA 40 MG/0.8 ML PEN [Suspect]
     Indication: VASCULITIS
     Route: 058
     Dates: start: 20111021, end: 20111216
  3. OMEGA 3 [Concomitant]
     Indication: PRODUCT USED FOR UNKNOWN INDICATION
  4. JUICE PLUS [Concomitant]
     Indication: PRODUCT USED FOR UNKNOWN INDICATION

REACTIONS (3)
  - Polymyalgia rheumatica [Not Recovered/Not Resolved]
  - Vasculitis [Not Recovered/Not Resolved]
  - Off label use [Not Recovered/Not Resolved]
